FAERS Safety Report 5626900-2 (Version None)
Quarter: 2008Q1

REPORT INFORMATION
  Report Type: 
  Country: None (occurrence: None)
  Receive Date: 20080212
  Receipt Date: 20080129
  Transmission Date: 20080703
  Serious: No
  Sender: FDA-Public Use
  Company Number: 2007BI022120

PATIENT
  Sex: Female

DRUGS (7)
  1. TYSABRI [Suspect]
     Indication: MULTIPLE SCLEROSIS
     Dosage: 300 MG; QM; IV
     Route: 042
     Dates: start: 20061005
  2. TYSABRI [Suspect]
  3. TYSABRI [Suspect]
  4. TYSABRI [Suspect]
  5. TYSABRI [Suspect]
  6. MITOXANTRONE [Concomitant]
  7. BETAFERON [Concomitant]

REACTIONS (3)
  - MICTURITION URGENCY [None]
  - SMEAR CERVIX ABNORMAL [None]
  - URGE INCONTINENCE [None]
